FAERS Safety Report 15821054 (Version 1)
Quarter: 2019Q1

REPORT INFORMATION
  Report Type: Spontaneous
  Country: GB (occurrence: GB)
  Receive Date: 20190114
  Receipt Date: 20190114
  Transmission Date: 20190417
  Serious: Yes (Other)
  Sender: FDA-Public Use
  Company Number: GB-GLAXOSMITHKLINE-GB2019002377

PATIENT
  Age: 53 Year
  Sex: Male
  Weight: 170 kg

DRUGS (1)
  1. MEPOLIZUMAB [Suspect]
     Active Substance: MEPOLIZUMAB
     Indication: ASTHMA
     Dosage: VARIABLE - 10 INJECTIONS IN TOTAL
     Route: 058
     Dates: start: 20170710, end: 20180505

REACTIONS (2)
  - Neuralgia [Unknown]
  - Pemphigoid [Not Recovered/Not Resolved]

NARRATIVE: CASE EVENT DATE: 201805
